FAERS Safety Report 12565043 (Version 1)
Quarter: 2016Q3

REPORT INFORMATION
  Report Type: Spontaneous
  Country: US (occurrence: None)
  Receive Date: 20160715
  Receipt Date: 20160715
  Transmission Date: 20161109
  Serious: No
  Sender: FDA-Public Use
  Company Number: None

PATIENT
  Age: 39 Year
  Sex: Female

DRUGS (1)
  1. SPIRONOLACTONE, 100MG [Suspect]
     Active Substance: SPIRONOLACTONE
     Route: 048

REACTIONS (4)
  - Heart rate increased [None]
  - Dysgeusia [None]
  - Malaise [None]
  - Abdominal pain upper [None]

NARRATIVE: CASE EVENT DATE: 20160714
